FAERS Safety Report 9218991 (Version 1)
Quarter: 2013Q2

REPORT INFORMATION
  Report Type: Spontaneous
  Country: EC (occurrence: EC)
  Receive Date: 20130409
  Receipt Date: 20130409
  Transmission Date: 20140414
  Serious: Yes (Other)
  Sender: FDA-Public Use
  Company Number: EC-PFIZER INC-2013109788

PATIENT
  Age: 38 Year
  Sex: Female

DRUGS (1)
  1. LYRICA [Suspect]
     Dosage: UNKNOWN
     Route: 048

REACTIONS (2)
  - Intervertebral disc protrusion [Unknown]
  - Gastrointestinal disorder [Unknown]
